FAERS Safety Report 6626333-6 (Version None)
Quarter: 2010Q1

REPORT INFORMATION
  Report Type: 
  Country: None (occurrence: None)
  Receive Date: 20100310
  Receipt Date: 20100225
  Transmission Date: 20100710
  Serious: Yes (Other)
  Sender: FDA-Public Use
  Company Number: CHNY2010DK00456

PATIENT
  Sex: Female
  Weight: 59 kg

DRUGS (1)
  1. SCOPOLAMINE [Suspect]
     Dosage: 1 MG, Q72H
     Route: 062
     Dates: start: 20100104, end: 20100107

REACTIONS (4)
  - AMNESIA [None]
  - HALLUCINATION [None]
  - MOTOR DYSFUNCTION [None]
  - VISUAL ACUITY REDUCED [None]
